FAERS Safety Report 8862081 (Version 8)
Quarter: 2013Q1

REPORT INFORMATION
  Report Type: Spontaneous
  Country: US (occurrence: US)
  Receive Date: 20121026
  Receipt Date: 20130315
  Transmission Date: 20140127
  Serious: Yes (Hospitalization, Congenital Anomaly, Other)
  Sender: FDA-Public Use
  Company Number: US-PFIZER INC-2012263704

PATIENT
  Sex: Female
  Weight: 4 kg

DRUGS (47)
  1. ZOLOFT [Suspect]
     Indication: DEPRESSION
     Dosage: 200 MG, 1X/DAY
     Route: 064
     Dates: start: 20080317, end: 20110712
  2. ZOLOFT [Suspect]
     Dosage: 100 MG, 1X/DAY
     Route: 064
     Dates: start: 20100530
  3. SERTRALINE HCL [Suspect]
     Indication: DEPRESSION
     Dosage: 200 MG, 1X/DAY
     Route: 064
     Dates: start: 20080317, end: 20110712
  4. SERTRALINE HCL [Suspect]
     Dosage: 150 MG, 1X/DAY (100MG ONE AND HALF TABLETS)
     Route: 064
     Dates: start: 20080504, end: 20100927
  5. SERTRALINE HCL [Suspect]
     Dosage: 100 MG, 2 TABLETS DAILY
     Route: 064
     Dates: start: 20080606
  6. SERTRALINE HCL [Suspect]
     Dosage: 100 MG, 1X/DAY
     Route: 064
     Dates: start: 20091125
  7. PRENATAL VITAMINS [Concomitant]
     Dosage: UNK
     Route: 064
  8. BENADRYL [Concomitant]
     Dosage: UNK
     Route: 064
  9. TYLENOL [Concomitant]
     Dosage: UNK
     Route: 064
  10. CLARITIN [Concomitant]
     Dosage: UNK
     Route: 064
  11. AFRIN [Concomitant]
     Dosage: UNK
     Route: 064
  12. LUNESTA [Concomitant]
     Dosage: UNK
     Route: 064
  13. ZOLPIDEM [Concomitant]
     Dosage: UNK
     Route: 064
  14. SENOKOT [Concomitant]
     Dosage: UNK
     Route: 064
  15. DERMOPLAST [Concomitant]
     Dosage: UNK
     Route: 064
  16. AMOXICILLIN [Concomitant]
     Dosage: UNK
     Route: 064
  17. DIFFERIN [Concomitant]
     Dosage: 45 G, 1X/DAY, (0.3%)
     Route: 064
     Dates: start: 20090825
  18. CLINDAMYCIN [Concomitant]
     Dosage: 300 MG, 2X/DAY
     Route: 064
     Dates: start: 20090928
  19. SULFACETAMIDE [Concomitant]
     Dosage: UNK
     Route: 064
  20. PHENTERMINE [Concomitant]
     Dosage: 37.5 MG, 1X/DAY, MORNING
     Route: 064
     Dates: start: 20090811
  21. CHANTIX [Concomitant]
     Dosage: UNK
     Route: 064
  22. ORTHO TRI CYCLEN [Concomitant]
     Dosage: UNK
     Route: 064
  23. FLUOXETINE [Concomitant]
     Dosage: UNK
     Route: 064
  24. NALTREXONE [Concomitant]
     Dosage: UNK
     Route: 064
  25. METHOCARBAMOL [Concomitant]
     Dosage: UNK
     Route: 064
  26. CELEBREX [Concomitant]
     Dosage: UNK
     Route: 064
  27. ADVIL [Concomitant]
     Dosage: UNK
     Route: 064
  28. ALLEGRA-D [Concomitant]
     Dosage: UNK
     Route: 064
  29. ADVIL COLD + SINUS [Concomitant]
     Dosage: UNK
     Route: 064
  30. NYQUIL [Concomitant]
     Dosage: UNK
     Route: 064
  31. ROZEREM [Concomitant]
     Dosage: UNK
     Route: 064
  32. AMBIEN CR [Concomitant]
     Dosage: UNK
     Route: 064
  33. TORADOL [Concomitant]
     Dosage: UNK
     Route: 064
  34. DIBUCAINE [Concomitant]
     Dosage: UNK
     Route: 064
  35. LANOLIN [Concomitant]
     Dosage: UNK
     Route: 064
  36. CLONIDINE [Concomitant]
     Dosage: 0.02 MG, 1X/DAY (EVERY NIGHT AT BEDTIME)
     Route: 064
  37. CLONIDINE [Concomitant]
     Dosage: 0.2 MG, 3X/DAY
     Route: 064
     Dates: start: 20090420
  38. TRIMETHOPRIM [Concomitant]
     Dosage: UNK
     Route: 064
  39. METROGEL [Concomitant]
     Dosage: UNK
     Route: 064
  40. SULFAMETHOXAZOLE W/TRIMETHOPRIM [Concomitant]
     Dosage: UNK
     Route: 064
     Dates: start: 20090904
  41. GABAPENTIN [Concomitant]
     Dosage: UNK MG, UNK
     Route: 064
  42. AZITHROMYCIN [Concomitant]
     Dosage: UNK
     Route: 064
  43. TRAZODONE [Concomitant]
     Dosage: UNK
     Route: 064
  44. METHYLPREDNISOLONE [Concomitant]
     Dosage: UNK
     Route: 064
  45. TRAMADOL [Concomitant]
     Dosage: UNK
     Route: 064
  46. HYDROXYZINE PAMOATE [Concomitant]
     Dosage: UNK
     Route: 064
  47. SEPTRA DS [Concomitant]
     Indication: STAPHYLOCOCCAL INFECTION
     Dosage: UNK
     Route: 064

REACTIONS (5)
  - Maternal exposure timing unspecified [Recovering/Resolving]
  - Craniosynostosis [Unknown]
  - Autism [Unknown]
  - Congenital anomaly [Unknown]
  - Strabismus [Recovering/Resolving]
